FAERS Safety Report 22098987 (Version 1)
Quarter: 2023Q1

REPORT INFORMATION
  Report Type: Report from Study
  Country: IE (occurrence: None)
  Receive Date: 20230315
  Receipt Date: 20230315
  Transmission Date: 20230418
  Serious: Yes (Hospitalization)
  Sender: FDA-Public Use
  Company Number: IE-Merck Healthcare KGaA-9388612

PATIENT
  Age: 51 Year
  Sex: Male

DRUGS (2)
  1. MAVENCLAD [Suspect]
     Active Substance: CLADRIBINE
     Indication: Relapsing-remitting multiple sclerosis
     Dosage: YEAR ONE WEEK ONE THERAPY AT A DOSE OF 2 DOSAGE FORM (DF) ON DAYS 1 TO 2 AND 1 DF ON DAYS 3 TO 5.
     Route: 048
     Dates: start: 20220404
  2. MAVENCLAD [Suspect]
     Active Substance: CLADRIBINE
     Dosage: YEAR ONE WEEK FIVE THERAPY AT A DOSE OF 2 DOSAGE FORM (DF) ON DAYS 1 TO 2 AND 1 DF ON DAYS 3 TO 5.
     Route: 048
     Dates: start: 20220502

REACTIONS (1)
  - Abscess [Recovered/Resolved]

NARRATIVE: CASE EVENT DATE: 20230201
